FAERS Safety Report 8840663 (Version 1)
Quarter: 2012Q4

REPORT INFORMATION
  Report Type: 
  Country: US (occurrence: US)
  Receive Date: 20121015
  Receipt Date: 20121015
  Transmission Date: 20130627
  Serious: Yes (Other)
  Sender: FDA-Public Use
  Company Number: US-PFIZER INC-2012251944

PATIENT
  Age: 41 Year
  Sex: Female
  Weight: 90.7 kg

DRUGS (1)
  1. ROBITUSSIN PEAK COLD NIGHTTIME COLD PLUS FLU [Suspect]
     Indication: NASOPHARYNGITIS
     Dosage: 2 DF, single
     Route: 048
     Dates: start: 20121003, end: 20121003

REACTIONS (4)
  - Choking [Recovered/Resolved]
  - Product quality issue [Recovered/Resolved]
  - Capsule physical issue [None]
  - Obstructive airways disorder [None]
